FAERS Safety Report 7657632-7 (Version None)
Quarter: 2011Q3

REPORT INFORMATION
  Report Type: 
  Country: None (occurrence: None)
  Receive Date: 20110804
  Receipt Date: 20110726
  Transmission Date: 20111222
  Serious: Yes (Other)
  Sender: FDA-Public Use
  Company Number: US-ASTRAZENECA-2011SE13831

PATIENT
  Age: 78 Year
  Sex: Female

DRUGS (1)
  1. ATACAND HCT [Suspect]
     Route: 048

REACTIONS (5)
  - THROAT LESION [None]
  - HYPERTENSION [None]
  - RECURRENT CANCER [None]
  - DRUG DOSE OMISSION [None]
  - AMNESIA [None]
